FAERS Safety Report 7028537-X (Version None)
Quarter: 2010Q4

REPORT INFORMATION
  Report Type: 
  Country: None (occurrence: None)
  Receive Date: 20101005
  Receipt Date: 20100927
  Transmission Date: 20110411
  Serious: No
  Sender: FDA-Public Use
  Company Number: US-JNJFOC-20100908615

PATIENT
  Sex: Female

DRUGS (2)
  1. SANDOZ FENTANYL TRANSDERMAL SYSTEM [Suspect]
     Indication: ARTHRALGIA
     Dosage: NDC# 0781-7241-55
     Route: 062
  2. FENTANYL-100 [Suspect]
     Indication: ARTHRALGIA
     Dosage: NDC# 0781-7241-55
     Route: 062

REACTIONS (4)
  - DRUG DOSE OMISSION [None]
  - PAIN [None]
  - PRODUCT QUALITY ISSUE [None]
  - TREATMENT NONCOMPLIANCE [None]
